FAERS Safety Report 4383009-6 (Version None)
Quarter: 2004Q2

REPORT INFORMATION
  Report Type: 
  Country: None (occurrence: None)
  Receive Date: 20040527
  Receipt Date: 20031103
  Transmission Date: 20050107
  Serious: Yes (Other)
  Sender: FDA-Public Use
  Company Number: PHEH2003US09715

PATIENT
  Age: 56 Year
  Sex: Female

DRUGS (5)
  1. VOLTAREN [Suspect]
     Indication: UVEITIS
     Dosage: BID, TOPICAL OPHTH.
     Dates: start: 20000901
  2. PREDO-FORTE [Concomitant]
  3. CELEBREX [Concomitant]
  4. VITAMIN B-12 [Concomitant]
  5. NASCOBAL [Concomitant]

REACTIONS (1)
  - CORNEAL OPACITY [None]
